FAERS Safety Report 12838738 (Version 1)
Quarter: 2016Q4

REPORT INFORMATION
  Report Type: Spontaneous
  Country: US (occurrence: US)
  Receive Date: 20161012
  Receipt Date: 20161012
  Transmission Date: 20170207
  Serious: No
  Sender: FDA-Public Use
  Company Number: US-PFIZER INC-2016463770

PATIENT
  Sex: Female

DRUGS (1)
  1. VERAPAMIL HCL [Suspect]
     Active Substance: VERAPAMIL HYDROCHLORIDE
     Dosage: 15 MG, 3X/DAY

REACTIONS (4)
  - Intentional product misuse [Unknown]
  - Tachycardia [Unknown]
  - Hypotension [Unknown]
  - Dizziness [Unknown]
